FAERS Safety Report 4652083-1 (Version None)
Quarter: 2005Q2

REPORT INFORMATION
  Report Type: 
  Country: None (occurrence: None)
  Receive Date: 20050502
  Receipt Date: 20050418
  Transmission Date: 20051028
  Serious: Yes (Other)
  Sender: FDA-Public Use
  Company Number: 2005062630

PATIENT
  Sex: Female
  Weight: 59.8748 kg

DRUGS (4)
  1. ZITHROMAX [Suspect]
     Indication: ILL-DEFINED DISORDER
     Dosage: 400 MG (200 MG, BID), ORAL
     Route: 048
     Dates: start: 20050310, end: 20050401
  2. ZITHROMAX [Suspect]
     Indication: IMPAIRED GASTRIC EMPTYING
     Dosage: 400 MG (200 MG, BID), ORAL
     Route: 048
     Dates: start: 20050310, end: 20050401
  3. ERYTHROMYCIN [Concomitant]
  4. LANSOPRAZOLE [Concomitant]

REACTIONS (4)
  - CHEST PAIN [None]
  - DYSPNOEA [None]
  - FATIGUE [None]
  - HEART RATE INCREASED [None]
